FAERS Safety Report 3769713 (Version 4)
Quarter: 2014Q1

REPORT INFORMATION
  Report Type: Spontaneous
  Country: JP (occurrence: None)
  Receive Date: 20020226
  Receipt Date: 20140106
  Transmission Date: 20141002
  Serious: Yes (Death, Life-Threatening, Other)
  Sender: FDA-Public Use
  Company Number: 2002000539-FJ

PATIENT
  Age: 15 Year
  Sex: Male

DRUGS (19)
  1. PROGRAF [Suspect]
     Indication: BONE MARROW TRANSPLANT
     Dosage: 4 UG/KG, UNKNOWN/D, IV NOS
     Route: 042
     Dates: start: 19991109, end: 19991219
  2. PROGRAF [Suspect]
     Indication: PROPHYLAXIS AGAINST GRAFT VERSUS HOST DISEASE
     Dosage: 4 UG/KG, UNKNOWN/D, IV NOS
     Route: 042
     Dates: start: 19991109, end: 19991219
  3. PREDNISOLONE [Suspect]
     Dosage: 80 MG, UNKNOWN/D; IV NOS
     Route: 042
     Dates: start: 19991108, end: 19991112
  4. METHYLPREDNISOLONE [Suspect]
     Dosage: 1 MG, UNKNOWN/D; IV NOS
     Route: 042
     Dates: start: 19991112, end: 19991117
  5. MEROPENEM TRIHYDRATE [Suspect]
     Dosage: UNK, UNKNOWN/D; IV NOS
     Route: 042
     Dates: start: 19991206, end: 19991217
  6. SULFAMETHOXAZOLE W/TRIMETHOPRIM [Suspect]
  7. ANTIBIOTICS [Suspect]
  8. CEFSULODIN SODIUM [Suspect]
     Dosage: UNKNOWN/D, IV NOS
     Route: 042
     Dates: start: 19991206, end: 19991217
  9. CYCLOSPORIN [Suspect]
     Indication: BONE MARROW TRANSPLANT
     Dosage: UNK, UNK, UNKNOWN
     Dates: end: 19991108
  10. BUPRENORPHINE HYDROCHLORIDE (BUPRENIRPHINE HYDROCHLORIDE) [Concomitant]
  11. AMPHOTERICIN B (AMPHOTERICIN B) [Concomitant]
  12. ACICLOVIR (ACICLOVIR) [Concomitant]
  13. CEFTAZIDIME (CEFTAZIDIME) [Concomitant]
  14. CEFOPERAZONE SODIUM W/SULBACTAM (CEFOPERAZONE SODIUM W/SULBACTAM) [Concomitant]
  15. CEFPIROME SULFATE (CEFPIROME SULFATE) [Concomitant]
  16. PANIPENEM (PANIPENEM) [Concomitant]
  17. DOPAMINE HYDROCHLORIDE (DOPAMINE HYDROCHLORIDE( [Concomitant]
  18. CYCLOPHOSPHAMIDE (CYCLOPHOSPHAMIDE) [Concomitant]
  19. BUSULFAN (BUSULFAN) [Concomitant]

REACTIONS (18)
  - Bronchopulmonary aspergillosis [None]
  - Clostridium difficile colitis [None]
  - Neutropenia [None]
  - Hepatic function abnormal [None]
  - Jaundice [None]
  - Hyperglycaemia [None]
  - Gastrointestinal candidiasis [None]
  - Hypernatraemia [None]
  - Hypoalbuminaemia [None]
  - Engraft failure [None]
  - Graft versus host disease [None]
  - Dehydration [None]
  - Renal failure [None]
  - Drug ineffective [None]
  - Acute graft versus host disease [None]
  - Bronchopulmonary aspergillosis [None]
  - Complications of transplant surgery [None]
  - Ascites [None]
